FAERS Safety Report 26076955 (Version 1)
Quarter: 2025Q4

REPORT INFORMATION
  Report Type: Spontaneous
  Country: AU (occurrence: AU)
  Receive Date: 20251121
  Receipt Date: 20251121
  Transmission Date: 20260118
  Serious: Yes (Life-Threatening, Hospitalization)
  Sender: NOVARTIS
  Company Number: AU-002147023-NVSC2025AU180004

PATIENT
  Age: 58 Year
  Sex: Male

DRUGS (1)
  1. ELTROMBOPAG [Suspect]
     Active Substance: ELTROMBOPAG
     Indication: Immune thrombocytopenia
     Dosage: 50 MG, QD
     Route: 065

REACTIONS (12)
  - Antiphospholipid syndrome [Recovered/Resolved]
  - Thrombotic microangiopathy [Unknown]
  - Acute kidney injury [Unknown]
  - Ventricular fibrillation [Unknown]
  - Cardiac arrest [Unknown]
  - Acute pulmonary oedema [Unknown]
  - Fatigue [Unknown]
  - Dyspnoea [Unknown]
  - Rales [Unknown]
  - Myocarditis [Unknown]
  - Oedema peripheral [Unknown]
  - Anuria [Unknown]
